FAERS Safety Report 8362316 (Version 4)
Quarter: 2014Q1

REPORT INFORMATION
  Report Type: Spontaneous
  Country: US (occurrence: US)
  Receive Date: 20120130
  Receipt Date: 20140212
  Transmission Date: 20141002
  Serious: Yes (Hospitalization, Other)
  Sender: FDA-Public Use
  Company Number: US-ROCHE-1034346

PATIENT
  Sex: Female

DRUGS (3)
  1. ACCUTANE [Suspect]
     Indication: ACNE
     Route: 065
     Dates: start: 200411, end: 200504
  2. ACCUTANE [Suspect]
     Route: 065
     Dates: start: 20051028, end: 200604
  3. AMNESTEEM [Suspect]
     Indication: ACNE
     Route: 065

REACTIONS (4)
  - Inflammatory bowel disease [Unknown]
  - Emotional distress [Unknown]
  - Dysfunctional uterine bleeding [Unknown]
  - Ovarian cyst [Unknown]
